FAERS Safety Report 9603605 (Version 1)
Quarter: 2013Q4

REPORT INFORMATION
  Report Type: Spontaneous
  Country: US (occurrence: US)
  Receive Date: 20131007
  Receipt Date: 20131007
  Transmission Date: 20140711
  Serious: Yes (Other)
  Sender: FDA-Public Use
  Company Number: US-PFIZER INC-2013283329

PATIENT
  Age: 22 Year
  Sex: Female
  Weight: 50.7 kg

DRUGS (4)
  1. ZOLOFT [Suspect]
     Indication: ANXIETY
     Dosage: 100 MG, 1X/DAY (QD)
     Route: 048
     Dates: start: 20130527
  2. ZOLOFT [Suspect]
     Indication: PANIC ATTACK
  3. LATUDA [Suspect]
     Dosage: UNK, 1X/DAY (QD)
     Route: 048
     Dates: start: 20130527, end: 20130608
  4. XANAX [Concomitant]
     Dosage: UNK

REACTIONS (6)
  - Eye swelling [Recovering/Resolving]
  - Oedema mouth [Recovering/Resolving]
  - Amnesia [Unknown]
  - Palpitations [Recovering/Resolving]
  - Hypoaesthesia oral [Recovering/Resolving]
  - Somnolence [Unknown]
